FAERS Safety Report 9847891 (Version 3)
Quarter: 2014Q1

REPORT INFORMATION
  Report Type: Spontaneous
  Country: US (occurrence: US)
  Receive Date: 20140128
  Receipt Date: 20140128
  Transmission Date: 20141002
  Serious: Yes (Hospitalization)
  Sender: FDA-Public Use
  Company Number: US-RB-062195-14

PATIENT
  Age: 30 Year
  Sex: Female

DRUGS (3)
  1. MUCINEX FAST-MAX SEVERE CONGESTION AND COUGH [Suspect]
     Indication: PRODUCT USED FOR UNKNOWN INDICATION
     Dosage: 20ML (1 TIME) ON 12-JAN-2014
     Route: 048
     Dates: start: 20140112
  2. NYQUIL [Suspect]
     Indication: PRODUCT USED FOR UNKNOWN INDICATION
     Dates: start: 20140112
  3. INSULIN [Concomitant]
     Indication: TYPE 1 DIABETES MELLITUS

REACTIONS (2)
  - Blood glucose increased [Recovered/Resolved]
  - Vomiting [Recovered/Resolved]
